FAERS Safety Report 5802048-9 (Version None)
Quarter: 2008Q3

REPORT INFORMATION
  Report Type: 
  Country: None (occurrence: None)
  Receive Date: 20080702
  Receipt Date: 20080617
  Transmission Date: 20090109
  Serious: Yes (Other)
  Sender: FDA-Public Use
  Company Number: 2008S1011067

PATIENT
  Age: 81 Year
  Sex: Female

DRUGS (5)
  1. NEBIVOLOL HCL [Suspect]
     Indication: HYPERTENSION
     Dosage: 5 MG; DAILY; ORAL
     Route: 048
     Dates: start: 20070201, end: 20080201
  2. ASPIRIN [Concomitant]
  3. ACETAMINOPHEN W/ CODEINE [Concomitant]
  4. LOSARTAN POTASSIUM [Concomitant]
  5. MIRTAZAPINE [Concomitant]

REACTIONS (2)
  - ALOPECIA [None]
  - DEPRESSED MOOD [None]
